FAERS Safety Report 6181886-X (Version None)
Quarter: 2009Q2

REPORT INFORMATION
  Report Type: 
  Country: None (occurrence: None)
  Receive Date: 20090420
  Receipt Date: 20090408
  Transmission Date: 20091009
  Serious: Yes (Death)
  Sender: FDA-Public Use
  Company Number: THYM-1000941

PATIENT
  Age: 50 Year
  Sex: Male
  Weight: 58 kg

DRUGS (2)
  1. THYMOGLOBULIN [Suspect]
     Indication: GRAFT VERSUS HOST DISEASE
     Dosage: 2.5 MG/KG, QD, INTRAVENOUS
     Route: 042
     Dates: start: 20090227, end: 20090228
  2. METHYLPREDNISOLONE [Concomitant]

REACTIONS (2)
  - DISEASE PROGRESSION [None]
  - GRAFT VERSUS HOST DISEASE [None]
